FAERS Safety Report 8321542-2 (Version None)
Quarter: 2012Q2

REPORT INFORMATION
  Report Type: 
  Country: None (occurrence: None)
  Receive Date: 20120430
  Receipt Date: 20120427
  Transmission Date: 20120825
  Serious: No
  Sender: FDA-Public Use
  Company Number: US-PFIZER INC-2012061199

PATIENT
  Sex: Female

DRUGS (7)
  1. SOLU-MEDROL [Suspect]
     Dosage: UNK, MONTHLY
     Route: 042
  2. TENORMIN [Concomitant]
     Dosage: UNK
  3. ASPIRIN [Concomitant]
     Dosage: UNK
  4. AMPYRA [Suspect]
     Dosage: 10 MG, Q 12 HRS
     Route: 048
     Dates: start: 20110801
  5. ZOCOR [Concomitant]
     Dosage: UNK
  6. BETASERON [Concomitant]
     Dosage: UNK
  7. GABAPENTIN [Concomitant]
     Dosage: UNK

REACTIONS (1)
  - VEIN DISORDER [None]
